FAERS Safety Report 16591589 (Version 2)
Quarter: 2019Q3

REPORT INFORMATION
  Report Type: Spontaneous
  Country: DE (occurrence: DE)
  Receive Date: 20190718
  Receipt Date: 20190807
  Transmission Date: 20191004
  Serious: Yes (Hospitalization, Other)
  Sender: FDA-Public Use
  Company Number: DE-ALVOGEN-2019-ALVOGEN-100643

PATIENT
  Age: 71 Year
  Sex: Male
  Weight: 68 kg

DRUGS (9)
  1. PRAVASIN [Suspect]
     Active Substance: PRAVASTATIN SODIUM
     Indication: VASCULAR GRAFT
     Dosage: 20.0MG UNKNOWN
     Route: 065
     Dates: start: 2003
  2. PRAVASIN [Suspect]
     Active Substance: PRAVASTATIN SODIUM
     Indication: VASCULAR GRAFT
     Dosage: EINNAHME IN DEN LETZTEN BEIDEN JAHREN20.0MG UNKNOWN
     Route: 065
     Dates: end: 201904
  3. TAMSULOSIN [Concomitant]
     Active Substance: TAMSULOSIN
     Indication: PRODUCT USED FOR UNKNOWN INDICATION
     Dosage: SEIT CA. 10 JAHREN JEDEN 2. TAG 1 TABLETTE  (INTERVAL: 1)
     Dates: start: 2009
  4. JODID [Concomitant]
     Active Substance: IODINE
     Indication: PRODUCT USED FOR UNKNOWN INDICATION
     Dosage: 200UG/INHALTION DAILY
     Route: 055
  5. ASPIRIN PROTECT [Concomitant]
     Active Substance: ASPIRIN
     Indication: VASCULAR GRAFT
     Dosage: INTERVAL: 1
     Dates: start: 2003
  6. LISINOPRIL. [Suspect]
     Active Substance: LISINOPRIL
     Indication: VASCULAR GRAFT
     Route: 048
     Dates: start: 2003
  7. PRAVASIN [Suspect]
     Active Substance: PRAVASTATIN SODIUM
     Indication: VASCULAR GRAFT
     Dosage: INTAKE IN THE LAST 2 YEARS10.0MG UNKNOWN
     Route: 065
  8. XUSAL [Concomitant]
     Active Substance: LEVOCETIRIZINE DIHYDROCHLORIDE
     Indication: PRODUCT USED FOR UNKNOWN INDICATION
     Dosage: 1 TABLETTE TAOGLICH SEIT CA. 10 JAHREN      (INTERVAL:1)
     Dates: start: 2009
  9. LISINOPRIL. [Suspect]
     Active Substance: LISINOPRIL
     Indication: VASCULAR GRAFT
     Dosage: SEIT EINIGEN WOCHEN 2,5MG - 5MG JE NACH BEDARF
     Route: 048
     Dates: start: 2019

REACTIONS (8)
  - Chills [Unknown]
  - Pollakiuria [Unknown]
  - Adverse reaction [Unknown]
  - Swelling face [Unknown]
  - Hypersensitivity [Unknown]
  - Dermatitis [Unknown]
  - Blood pressure fluctuation [Unknown]
  - Weight decreased [Unknown]
